FAERS Safety Report 9850581 (Version 1)
Quarter: 2013Q4

REPORT INFORMATION
  Report Type: Spontaneous
  Country: US (occurrence: None)
  Receive Date: 20131226
  Receipt Date: 20131226
  Transmission Date: 20140711
  Serious: Yes (Hospitalization)
  Sender: FDA-Public Use
  Company Number: PHEH2012US016763

PATIENT
  Age: 77 Year
  Sex: Male
  Weight: 125.9 kg

DRUGS (7)
  1. AFINITOR (RAD) UNKNOWN [Suspect]
     Indication: RENAL CELL CARCINOMA
     Route: 048
  2. WARFARIN (WARFARIN) [Concomitant]
  3. METOPROLOL [Concomitant]
  4. LASIX [Suspect]
  5. OMEPRAZOLE (OMPRAZOLE), 20 MG [Concomitant]
  6. ENALAPRIL (ENALAPRIL), 20 MG [Concomitant]
  7. POTASSIUM CHLORIDE [Suspect]

REACTIONS (3)
  - Abdominal pain [None]
  - Generalised oedema [None]
  - Fatigue [None]
